FAERS Safety Report 6644070-9 (Version None)
Quarter: 2010Q1

REPORT INFORMATION
  Report Type: 
  Country: None (occurrence: None)
  Receive Date: 20100322
  Receipt Date: 20100308
  Transmission Date: 20100710
  Serious: Yes (Life-Threatening, Other)
  Sender: FDA-Public Use
  Company Number: PHHY2010BD14975

PATIENT
  Age: 14 Year
  Sex: Male
  Weight: 35 kg

DRUGS (1)
  1. VOLTALIN [Suspect]
     Dosage: 100 MG DAILY
     Route: 054
     Dates: start: 20091205, end: 20091206

REACTIONS (1)
  - HYPOTHERMIA [None]
